FAERS Safety Report 9202812 (Version 2)
Quarter: 2013Q2

REPORT INFORMATION
  Report Type: Report from Study
  Country: US (occurrence: US)
  Receive Date: 20130401
  Receipt Date: 20130410
  Transmission Date: 20140414
  Serious: Yes (Other)
  Sender: FDA-Public Use
  Company Number: US-ABBOTT-13P-163-1068796-00

PATIENT
  Age: 55 Year
  Sex: Male

DRUGS (9)
  1. HUMIRA [Suspect]
     Indication: ANKYLOSING SPONDYLITIS
  2. PREDNISONE [Concomitant]
     Indication: PRODUCT USED FOR UNKNOWN INDICATION
     Dosage: 5 MG 1 TABLET, AS NEEDED
  3. HYDROCODONE / ACETAMINOPHEN [Concomitant]
     Indication: ANKYLOSING SPONDYLITIS
     Dosage: 5/325 MG 1 TABLET, AS NEEDED
  4. OXAPRAZIN [Concomitant]
     Indication: ANTIINFLAMMATORY THERAPY
     Dosage: AS NEEDED
  5. ZETIA [Concomitant]
     Indication: PRODUCT USED FOR UNKNOWN INDICATION
  6. ATORVASTATIN [Concomitant]
     Indication: BLOOD CHOLESTEROL
  7. AMLODIPINE BESYLATE [Concomitant]
     Indication: PRODUCT USED FOR UNKNOWN INDICATION
  8. BYSTOLIC [Concomitant]
     Indication: BLOOD PRESSURE
  9. MULTI VITAMIN [Concomitant]
     Indication: VITAMIN SUPPLEMENTATION

REACTIONS (6)
  - Extrasystoles [Unknown]
  - Loss of consciousness [Unknown]
  - Blood cholesterol increased [Unknown]
  - Device malfunction [Unknown]
  - Incorrect dose administered [Unknown]
  - Back pain [Unknown]
